FAERS Safety Report 7648263-3 (Version None)
Quarter: 2011Q3

REPORT INFORMATION
  Report Type: 
  Country: None (occurrence: None)
  Receive Date: 20110801
  Receipt Date: 20110725
  Transmission Date: 20111222
  Serious: Yes (Other)
  Sender: FDA-Public Use
  Company Number: US-ACTELION-A-US2011-51135

PATIENT

DRUGS (3)
  1. TRACLEER [Suspect]
     Dosage: 62.5 MG, UNK
     Route: 048
     Dates: start: 20090320
  2. REVATIO [Concomitant]
  3. TRACLEER [Suspect]
     Indication: PULMONARY ARTERIAL HYPERTENSION
     Dosage: 125 MG, UNK
     Route: 048

REACTIONS (4)
  - VASODILATATION [None]
  - HALLUCINATION [None]
  - AMNESIA [None]
  - DEPRESSION [None]
